FAERS Safety Report 10203550 (Version 1)
Quarter: 2014Q2

REPORT INFORMATION
  Report Type: Spontaneous
  Country: CH (occurrence: CH)
  Receive Date: 20140529
  Receipt Date: 20140529
  Transmission Date: 20141212
  Serious: Yes (Hospitalization)
  Sender: FDA-Public Use
  Company Number: CH-ROCHE-1409353

PATIENT
  Age: 89 Year
  Sex: Female
  Weight: 59 kg

DRUGS (5)
  1. LUCENTIS [Suspect]
     Indication: AGE-RELATED MACULAR DEGENERATION
     Dosage: 10 MG/ML.
     Route: 050
     Dates: start: 20090810
  2. LUCENTIS [Suspect]
     Dosage: 10 MG/ML.
     Route: 050
     Dates: start: 20140318
  3. CALPEROS D3 [Concomitant]
  4. ATORVASTATIN [Concomitant]
  5. ASS [Concomitant]

REACTIONS (1)
  - Cerebellar ischaemia [Recovered/Resolved]
